FAERS Safety Report 7347280-0 (Version None)
Quarter: 2011Q1

REPORT INFORMATION
  Report Type: 
  Country: None (occurrence: None)
  Receive Date: 20110302
  Receipt Date: 20110223
  Transmission Date: 20110831
  Serious: Yes (Hospitalization, Disabling)
  Sender: FDA-Public Use
  Company Number: 2010SP040550

PATIENT
  Age: 36 Year
  Sex: Female
  Weight: 86.1834 kg

DRUGS (3)
  1. NUVARING [Suspect]
     Indication: CONTRACEPTION
     Dates: start: 20070810, end: 20080814
  2. MARIJUANA [Concomitant]
  3. ADVIL LIQUI-GELS [Concomitant]

REACTIONS (10)
  - BRAIN OEDEMA [None]
  - SCOTOMA [None]
  - HAEMORRHAGIC STROKE [None]
  - DEPRESSION [None]
  - HEADACHE [None]
  - POST-TRAUMATIC STRESS DISORDER [None]
  - CONVULSION [None]
  - INSOMNIA [None]
  - CHOLELITHIASIS [None]
  - TRANSVERSE SINUS THROMBOSIS [None]
